FAERS Safety Report 21742528 (Version 1)
Quarter: 2022Q4

REPORT INFORMATION
  Report Type: Spontaneous
  Country: US (occurrence: US)
  Receive Date: 20221216
  Receipt Date: 20221216
  Transmission Date: 20230113
  Serious: Yes (Other)
  Sender: FDA-Public Use
  Company Number: US-CELLTRION INC.-2022US021040

PATIENT

DRUGS (2)
  1. TRUXIMA [Suspect]
     Active Substance: RITUXIMAB-ABBS
     Indication: Immune thrombocytopenia
     Dosage: 800MG WEEKLY TIMES 4 DOSES
     Dates: start: 20221117
  2. TRUXIMA [Suspect]
     Active Substance: RITUXIMAB-ABBS
     Dosage: 800MG WEEKLY TIMES 4 DOSES
     Dates: start: 20221125

REACTIONS (2)
  - Immune thrombocytopenia [Unknown]
  - Off label use [Unknown]
